FAERS Safety Report 8078468-1 (Version None)
Quarter: 2012Q1

REPORT INFORMATION
  Report Type: 
  Country: None (occurrence: None)
  Receive Date: 20120127
  Receipt Date: 20120127
  Transmission Date: 20120608
  Serious: No
  Sender: FDA-Public Use
  Company Number: None

PATIENT
  Sex: Male

DRUGS (1)
  1. RIBAVIRIN [Suspect]
     Indication: SKIN DISORDER
     Dosage: 400 MG PO
     Route: 048
     Dates: start: 20120124

REACTIONS (4)
  - PRURITUS [None]
  - ERYTHEMA [None]
  - RASH [None]
  - DYSPNOEA [None]
